FAERS Safety Report 20890296 (Version 1)
Quarter: 2022Q2

REPORT INFORMATION
  Report Type: Spontaneous
  Country: FR (occurrence: FR)
  Receive Date: 20220530
  Receipt Date: 20220530
  Transmission Date: 20220721
  Serious: Yes (Other)
  Sender: FDA-Public Use
  Company Number: None

PATIENT
  Age: 43 Year
  Sex: Female
  Weight: 69 kg

DRUGS (1)
  1. DOXYCYCLINE [Suspect]
     Active Substance: DOXYCYCLINE
     Indication: Lyme disease
     Dosage: 100 MG, Q12H, (1 COMPRIME MIDI 1 COMPRIME LE SOIR)
     Route: 048
     Dates: start: 20220302, end: 20220316

REACTIONS (5)
  - Burn oral cavity [Not Recovered/Not Resolved]
  - Palpitations [Recovered/Resolved]
  - Oropharyngeal swelling [Not Recovered/Not Resolved]
  - Headache [Not Recovered/Not Resolved]
  - Nausea [Recovered/Resolved]

NARRATIVE: CASE EVENT DATE: 20220302
